FAERS Safety Report 16320614 (Version 2)
Quarter: 2019Q2

REPORT INFORMATION
  Report Type: Spontaneous
  Country: US (occurrence: US)
  Receive Date: 20190516
  Receipt Date: 20190521
  Transmission Date: 20190711
  Serious: No
  Sender: FDA-Public Use
  Company Number: US-PFIZER INC-2019205810

PATIENT
  Age: 75 Year
  Sex: Male
  Weight: 105 kg

DRUGS (5)
  1. INSULIN [Concomitant]
     Active Substance: INSULIN NOS
     Dosage: 60 IU, 1X/DAY(AT NIGHT.)
  2. LYRICA [Suspect]
     Active Substance: PREGABALIN
     Indication: DIABETIC NEUROPATHY
     Dosage: 25 MG, 3X/DAY
     Route: 048
  3. INSULIN [Concomitant]
     Active Substance: INSULIN NOS
     Dosage: 20 IU, 1X/DAY(20 UNITS INJECTION STOMACH, LEGS ANYWHERE CAN EVERY NIGHT )
  4. HYDROCODONE [Concomitant]
     Active Substance: HYDROCODONE
     Dosage: UNK
  5. INSULIN [Concomitant]
     Active Substance: INSULIN NOS
     Indication: DIABETES MELLITUS
     Dosage: 80 IU, 1X/DAY(AT NIGHT.)
     Dates: start: 2004

REACTIONS (1)
  - Drug ineffective [Unknown]
